FAERS Safety Report 7797656-2 (Version None)
Quarter: 2011Q4

REPORT INFORMATION
  Report Type: 
  Country: None (occurrence: None)
  Receive Date: 20111005
  Receipt Date: 20110923
  Transmission Date: 20120403
  Serious: Yes (Hospitalization, Other)
  Sender: FDA-Public Use
  Company Number: US-ELI_LILLY_AND_COMPANY-US201109007610

PATIENT
  Sex: Female

DRUGS (14)
  1. CALCIUM CITRATE W/COLECALCIFEROL [Concomitant]
  2. STOOL SOFTENER [Concomitant]
     Dosage: UNK, QD
  3. SEROQUEL [Concomitant]
  4. MULTI-VITAMIN [Concomitant]
     Dosage: UNK, OTHER
  5. FISH OIL [Concomitant]
     Dosage: UNK, QD
  6. VENLAFAXINE HYDROCHLORIDE [Concomitant]
  7. MISOPROSTOL [Concomitant]
  8. FORTEO [Suspect]
     Indication: OSTEOPOROSIS
     Dosage: 20 UG, QD
  9. LORAZEPAM [Concomitant]
  10. MIRTAZAPINE [Concomitant]
     Dosage: UNK, QD
  11. IRON [Concomitant]
     Dosage: UNK, QD
  12. VITAMIN D [Concomitant]
     Dosage: UNK, QD
  13. ASPIRIN [Concomitant]
  14. CARAFATE [Concomitant]

REACTIONS (9)
  - WEIGHT DECREASED [None]
  - VISUAL ACUITY REDUCED [None]
  - VOMITING [None]
  - OESOPHAGEAL ULCER [None]
  - FATIGUE [None]
  - DYSPHAGIA [None]
  - GAIT DISTURBANCE [None]
  - MALNUTRITION [None]
  - ASTHMA [None]
